FAERS Safety Report 6342129-7 (Version None)
Quarter: 2009Q3

REPORT INFORMATION
  Report Type: 
  Country: None (occurrence: None)
  Receive Date: 20090904
  Receipt Date: 20090904
  Transmission Date: 20100115
  Serious: Yes (Other)
  Sender: FDA-Public Use
  Company Number: None

PATIENT
  Age: 55 Year
  Sex: Male
  Weight: 136.0791 kg

DRUGS (6)
  1. CEFTRIAXONE [Suspect]
     Indication: ARTHRITIS INFECTIVE
     Dosage: 2 GRAMS DAILY IV DRIP
     Route: 041
     Dates: start: 20090723, end: 20090819
  2. CEFTRIAXONE [Suspect]
     Indication: DEVICE RELATED INFECTION
     Dosage: 2 GRAMS DAILY IV DRIP
     Route: 041
     Dates: start: 20090723, end: 20090819
  3. RIFAMPICIN [Suspect]
     Indication: ARTHRITIS INFECTIVE
     Dosage: 300 MG TWICE DAILY PO
     Route: 048
     Dates: start: 20090801, end: 20090819
  4. VANCOMYCIN [Concomitant]
  5. ASPIRIN [Concomitant]
  6. LISINOPRIL [Concomitant]

REACTIONS (8)
  - DECREASED APPETITE [None]
  - DIZZINESS [None]
  - HEPATITIS [None]
  - MALAISE [None]
  - NAUSEA [None]
  - PANCYTOPENIA [None]
  - PYREXIA [None]
  - RENAL FAILURE [None]
